FAERS Safety Report 17197100 (Version 1)
Quarter: 2019Q4

REPORT INFORMATION
  Report Type: Report from Study
  Country: US (occurrence: US)
  Receive Date: 20191224
  Receipt Date: 20191224
  Transmission Date: 20200122
  Serious: No
  Sender: FDA-Public Use
  Company Number: NVSC2019US076657

PATIENT
  Age: 41 Year
  Sex: Male

DRUGS (2)
  1. COSENTYX [Suspect]
     Active Substance: SECUKINUMAB
     Indication: PSORIASIS
     Dosage: 300 MG, Q4W
     Route: 058
     Dates: start: 201906
  2. COSENTYX [Suspect]
     Active Substance: SECUKINUMAB
     Indication: PSORIATIC ARTHROPATHY

REACTIONS (6)
  - Concomitant disease aggravated [Unknown]
  - Hypertension [Unknown]
  - Pruritus [Unknown]
  - Drug ineffective [Unknown]
  - Epistaxis [Unknown]
  - Rash [Unknown]

NARRATIVE: CASE EVENT DATE: 201912
